FAERS Safety Report 17442604 (Version 1)
Quarter: 2020Q1

REPORT INFORMATION
  Report Type: Spontaneous
  Country: BR (occurrence: BR)
  Receive Date: 20200220
  Receipt Date: 20200220
  Transmission Date: 20200409
  Serious: Yes (Other)
  Sender: FDA-Public Use
  Company Number: BR-GE HEALTHCARE LIFE SCIENCES-2020CSU000815

PATIENT

DRUGS (3)
  1. OMNIPAQUE [Suspect]
     Active Substance: IOHEXOL
     Indication: ANGIOGRAM
     Dosage: 100 ML, SINGLE
     Route: 042
     Dates: start: 20200113, end: 20200113
  2. OMNIPAQUE [Suspect]
     Active Substance: IOHEXOL
     Indication: PULMONARY EMBOLISM
  3. ALENIA [Concomitant]
     Dosage: UNK

REACTIONS (6)
  - Feeling abnormal [Unknown]
  - Nodule [Unknown]
  - Pruritus [Unknown]
  - Erythema [Unknown]
  - Vomiting [Unknown]
  - Pain [Unknown]
